FAERS Safety Report 25046096 (Version 1)
Quarter: 2025Q1

REPORT INFORMATION
  Report Type: Spontaneous
  Country: US (occurrence: US)
  Receive Date: 20250306
  Receipt Date: 20250306
  Transmission Date: 20250409
  Serious: Yes (Disabling)
  Sender: MERZ
  Company Number: None

PATIENT

DRUGS (1)
  1. XEOMIN [Suspect]
     Active Substance: INCOBOTULINUMTOXINA
     Indication: Skin wrinkling

REACTIONS (5)
  - Blepharospasm [Unknown]
  - Palpitations [Unknown]
  - Pupillary disorder [Unknown]
  - Vertigo [Unknown]
  - Anxiety [Unknown]

NARRATIVE: CASE EVENT DATE: 20240610
